FAERS Safety Report 18987811 (Version 1)
Quarter: 2021Q1

REPORT INFORMATION
  Report Type: Spontaneous
  Country: DE (occurrence: DE)
  Receive Date: 20210309
  Receipt Date: 20210309
  Transmission Date: 20210420
  Serious: Yes (Life-Threatening, Hospitalization)
  Sender: FDA-Public Use
  Company Number: DE-TEVA-2021-DE-1887311

PATIENT
  Age: 43 Year
  Sex: Male
  Weight: 80 kg

DRUGS (3)
  1. VALPROINSAURE/VALPROINSAURE [Concomitant]
     Dosage: 4 DOSAGE FORMS DAILY; 500 MG, 2?0?2?0
     Route: 048
  2. PREDNISOLON [Suspect]
     Active Substance: PREDNISOLONE
     Dosage: 1 G, LATE 22062020
     Route: 065
  3. PANTOPRAZOL [Concomitant]
     Active Substance: PANTOPRAZOLE SODIUM
     Dosage: 40 MILLIGRAM DAILY; 40 MG, 1?0?0?0

REACTIONS (3)
  - General physical health deterioration [Recovering/Resolving]
  - Seizure [Recovering/Resolving]
  - Depressed level of consciousness [Recovering/Resolving]
